FAERS Safety Report 19593344 (Version 1)
Quarter: 2021Q3

REPORT INFORMATION
  Report Type: Spontaneous
  Country: US (occurrence: US)
  Receive Date: 20210722
  Receipt Date: 20210722
  Transmission Date: 20211014
  Serious: Yes (Disabling)
  Sender: FDA-Public Use
  Company Number: None

PATIENT
  Sex: Female

DRUGS (1)
  1. LEVOFLOXACIN. [Suspect]
     Active Substance: LEVOFLOXACIN
     Indication: PHARYNGITIS STREPTOCOCCAL
     Route: 048

REACTIONS (5)
  - Fatigue [None]
  - Panic attack [None]
  - Tendon pain [None]
  - Feeling abnormal [None]
  - Neuralgia [None]

NARRATIVE: CASE EVENT DATE: 20180309
